FAERS Safety Report 5624034-4 (Version None)
Quarter: 2008Q1

REPORT INFORMATION
  Report Type: 
  Country: None (occurrence: None)
  Receive Date: 20080213
  Receipt Date: 20070510
  Transmission Date: 20080703
  Serious: No
  Sender: FDA-Public Use
  Company Number: US-KINGPHARMUSA00001-K200700588

PATIENT

DRUGS (11)
  1. EPIPEN [Suspect]
     Dosage: .3 MG, SINGLE
     Dates: start: 20070510, end: 20070510
  2. ZYPREXA [Concomitant]
     Indication: MENTAL DISORDER
  3. DEPAKOTE [Concomitant]
     Indication: MENTAL DISORDER
  4. ZOLOFT [Concomitant]
     Indication: MENTAL DISORDER
  5. TRAZODONE HCL [Concomitant]
     Indication: MENTAL DISORDER
  6. FLUPHENAZINE [Concomitant]
     Indication: MENTAL DISORDER
  7. TRIHEXYPHENIDYL HCL [Concomitant]
  8. LEVOTHYROXINE SODIUM [Concomitant]
  9. NEXIUM [Concomitant]
  10. DOCUSATE [Concomitant]
  11. ZOCOR [Concomitant]

REACTIONS (3)
  - ACCIDENTAL EXPOSURE [None]
  - INJECTION SITE PALLOR [None]
  - TREMOR [None]
